FAERS Safety Report 23542070 (Version 1)
Quarter: 2024Q1

REPORT INFORMATION
  Report Type: Spontaneous
  Country: FR (occurrence: FR)
  Receive Date: 20240220
  Receipt Date: 20240220
  Transmission Date: 20240409
  Serious: Yes (Hospitalization)
  Sender: FDA-Public Use
  Company Number: None

PATIENT
  Age: 69 Year
  Sex: Male

DRUGS (10)
  1. AMOXICILLIN [Suspect]
     Active Substance: AMOXICILLIN
     Indication: Pneumonia
     Dosage: UNKNOWN
     Route: 065
     Dates: start: 20221223, end: 20221225
  2. MEROPENEM [Suspect]
     Active Substance: MEROPENEM
     Indication: Pneumonia
     Dosage: UNKNOWN
     Route: 042
     Dates: start: 20230113, end: 20230124
  3. PIPERACILLIN SODIUM\TAZOBACTAM SODIUM [Suspect]
     Active Substance: PIPERACILLIN SODIUM\TAZOBACTAM SODIUM
     Indication: Pneumonia
     Dosage: UNKNOWN
     Route: 042
     Dates: start: 20221225, end: 20221228
  4. IOMERON [Suspect]
     Active Substance: IOMEPROL
     Indication: Computerised tomogram
     Dosage: 400 (400 MG IODINE/ML), TOTAL
     Route: 042
     Dates: start: 20221226, end: 20221226
  5. IOMERON [Suspect]
     Active Substance: IOMEPROL
     Indication: Computerised tomogram
     Dosage: 400 (400 MG IODINE/ML), TOTAL
     Route: 042
     Dates: start: 20230301, end: 20230301
  6. IOMERON [Suspect]
     Active Substance: IOMEPROL
     Indication: Computerised tomogram
     Dosage: 400 (400 MG IODINE/ML), TOTAL
     Route: 042
     Dates: start: 20230307, end: 20230307
  7. IOMERON [Suspect]
     Active Substance: IOMEPROL
     Indication: Computerised tomogram
     Dosage: 400 (400 MG IODINE/ML), TOTAL
     Route: 042
     Dates: start: 20221231, end: 20221231
  8. IOMERON [Suspect]
     Active Substance: IOMEPROL
     Indication: Computerised tomogram
     Dosage: 400 (400 MG IODINE/ML), TOTAL
     Route: 042
     Dates: start: 20230119, end: 20230119
  9. IOMERON [Suspect]
     Active Substance: IOMEPROL
     Indication: Computerised tomogram
     Dosage: 400 (400 MG IODINE/ML), TOTAL
     Route: 042
     Dates: start: 20230105, end: 20230105
  10. CEFEPIME [Suspect]
     Active Substance: CEFEPIME HYDROCHLORIDE
     Indication: Pneumonia
     Dosage: UNKNOWN
     Route: 042
     Dates: start: 20230103, end: 20230113

REACTIONS (1)
  - Rash erythematous [Recovered/Resolved]

NARRATIVE: CASE EVENT DATE: 20230114
